FAERS Safety Report 4624534-X (Version None)
Quarter: 2005Q1

REPORT INFORMATION
  Report Type: 
  Country: None (occurrence: None)
  Receive Date: 20050107
  Receipt Date: 20040915
  Transmission Date: 20050727
  Serious: No
  Sender: FDA-Public Use
  Company Number: 234696K04USA

PATIENT
  Age: 25 Year
  Sex: Female

DRUGS (1)
  1. REBIF [Suspect]
     Indication: MULTIPLE SCLEROSIS
     Dates: start: 20040101

REACTIONS (6)
  - COORDINATION ABNORMAL [None]
  - HYPOAESTHESIA [None]
  - KIDNEY INFECTION [None]
  - RENAL ABSCESS [None]
  - VISION BLURRED [None]
  - VISUAL DISTURBANCE [None]
